FAERS Safety Report 9813558 (Version 1)
Quarter: 2014Q1

REPORT INFORMATION
  Report Type: Spontaneous
  Country: US (occurrence: None)
  Receive Date: 20140109
  Receipt Date: 20140109
  Transmission Date: 20141002
  Serious: Yes (Hospitalization)
  Sender: FDA-Public Use
  Company Number: None

PATIENT
  Age: 9 Year
  Sex: Female
  Weight: 27.1 kg

DRUGS (8)
  1. ALISERTIB [Suspect]
     Indication: NEUROBLASTOMA
     Route: 048
     Dates: start: 20131120, end: 20131127
  2. LOSARTAN [Concomitant]
  3. CLONIDINE [Concomitant]
  4. CHOLECALIFEROL [Concomitant]
  5. OXYCODONE [Concomitant]
  6. FLUTICASONE [Concomitant]
  7. ZYRTEC [Concomitant]
  8. BACTRIM [Concomitant]

REACTIONS (1)
  - Varicella [None]
